FAERS Safety Report 22060189 (Version 2)
Quarter: 2023Q2

REPORT INFORMATION
  Report Type: Spontaneous
  Country: US (occurrence: US)
  Receive Date: 20230303
  Receipt Date: 20230425
  Transmission Date: 20230721
  Serious: No
  Sender: FDA-Public Use
  Company Number: US-PFIZER INC-PV202300040915

PATIENT
  Age: 65 Year
  Sex: Female
  Weight: 61.678 kg

DRUGS (2)
  1. NURTEC ODT [Suspect]
     Active Substance: RIMEGEPANT SULFATE
     Indication: Migraine
     Dosage: 75 MG, 1X/DAY
     Route: 048
     Dates: start: 20230202, end: 20230218
  2. ASPIRIN\CAFFEINE\SALICYLAMIDE [Concomitant]
     Active Substance: ASPIRIN\CAFFEINE\SALICYLAMIDE
     Indication: Migraine
     Dosage: UNK
     Route: 048
     Dates: start: 20230102, end: 20230315

REACTIONS (1)
  - Drug ineffective [Not Recovered/Not Resolved]
